FAERS Safety Report 11103797 (Version 2)
Quarter: 2015Q3

REPORT INFORMATION
  Report Type: Report from Study
  Country: US (occurrence: None)
  Receive Date: 20150508
  Receipt Date: 20150702
  Transmission Date: 20151125
  Serious: Yes (Hospitalization, Other)
  Sender: FDA-Public Use
  Company Number: US-2015CRT000475

PATIENT
  Age: 51 Year
  Sex: Female
  Weight: 62.6 kg

DRUGS (11)
  1. SYNTHROID [Concomitant]
     Active Substance: LEVOTHYROXINE SODIUM
  2. RISEDRONATE (RISEDRONATE SODIUM) [Concomitant]
  3. SPIRONOLACTONE. [Concomitant]
     Active Substance: SPIRONOLACTONE
  4. LISINOPRIL. [Concomitant]
     Active Substance: LISINOPRIL
  5. PROTONIX [Concomitant]
     Active Substance: PANTOPRAZOLE SODIUM
  6. K-DUR [Concomitant]
     Active Substance: POTASSIUM CHLORIDE
  7. PROZAC [Concomitant]
     Active Substance: FLUOXETINE HYDROCHLORIDE
  8. KORLYM [Suspect]
     Active Substance: MIFEPRISTONE
     Indication: CUSHING^S SYNDROME
     Dosage: 600 MG, DAILY, ORAL
     Route: 048
     Dates: start: 201308
  9. SEROQUEL [Concomitant]
     Active Substance: QUETIAPINE FUMARATE
  10. LABETALOL [Concomitant]
     Active Substance: LABETALOL\LABETALOL HYDROCHLORIDE
  11. VITAMIN D /00107901/ (ERGOCALCIFEROL) [Concomitant]

REACTIONS (2)
  - Blood electrolytes abnormal [None]
  - Blood potassium decreased [None]

NARRATIVE: CASE EVENT DATE: 20150316
